FAERS Safety Report 17323575 (Version 1)
Quarter: 2020Q1

REPORT INFORMATION
  Report Type: Spontaneous
  Country: US (occurrence: US)
  Receive Date: 20200109
  Receipt Date: 20200109
  Transmission Date: 20200409
  Serious: Yes (Hospitalization)
  Sender: FDA-Public Use
  Company Number: None

PATIENT
  Age: 70 Year
  Sex: Female

DRUGS (2)
  1. EXEMESTANE. [Concomitant]
     Active Substance: EXEMESTANE
  2. AFINITOR [Suspect]
     Active Substance: EVEROLIMUS
     Indication: NEOPLASM MALIGNANT
     Route: 048

REACTIONS (5)
  - Disease progression [None]
  - Bone pain [None]
  - Therapy cessation [None]
  - Myalgia [None]
  - Septic shock [None]
